FAERS Safety Report 8336559-1 (Version None)
Quarter: 2012Q2

REPORT INFORMATION
  Report Type: 
  Country: None (occurrence: None)
  Receive Date: 20120504
  Receipt Date: 20111228
  Transmission Date: 20120825
  Serious: Yes (Other)
  Sender: FDA-Public Use
  Company Number: CA-JNJFOC-20111212832

PATIENT
  Sex: Female

DRUGS (4)
  1. VOLTAREN [Concomitant]
  2. NEXIUM [Concomitant]
  3. SIMPONI [Suspect]
     Indication: ANKYLOSING SPONDYLITIS
     Route: 058
     Dates: start: 20111125
  4. HYDROMORPHONE HCL [Concomitant]

REACTIONS (1)
  - ABSCESS [None]
